FAERS Safety Report 6076700-7 (Version None)
Quarter: 2009Q1

REPORT INFORMATION
  Report Type: 
  Country: None (occurrence: None)
  Receive Date: 20090213
  Receipt Date: 20090209
  Transmission Date: 20090719
  Serious: Yes (Death, Other)
  Sender: FDA-Public Use
  Company Number: PHHY2009JP04580

PATIENT
  Sex: Male

DRUGS (9)
  1. ZOLEDRONIC ACID [Suspect]
     Indication: METASTASES TO BONE
     Dosage: 4 MG EVERY 3 WEEKS
     Dates: start: 20071214, end: 20080306
  2. ZOLEDRONIC ACID [Suspect]
     Dosage: 4 MG EVERY 4 WEEKS
     Dates: start: 20080307, end: 20080626
  3. EUGLUCON [Concomitant]
     Dosage: 5 MG, UNK
     Route: 048
     Dates: start: 20071214, end: 20080728
  4. GASTER D [Concomitant]
     Dosage: 20 MG, UNK
     Route: 048
     Dates: start: 20071214, end: 20080728
  5. CASODEX [Concomitant]
     Dosage: 80 MG, UNK
     Route: 048
     Dates: start: 20071214, end: 20080728
  6. CALCIUM CARBONATE [Concomitant]
     Dosage: 3000 MG, UNK
     Route: 048
     Dates: start: 20080112, end: 20080728
  7. LEUPROLIDE ACETATE [Concomitant]
     Dosage: 11.25 MG, UNK
     Route: 042
     Dates: start: 20071214, end: 20080528
  8. OXYCONTIN [Concomitant]
     Dosage: 10 MG, UNK
     Dates: start: 20070707, end: 20070805
  9. DUROTEP [Concomitant]
     Dosage: 21 MG, UNK
     Route: 065
     Dates: start: 20080806, end: 20080812

REACTIONS (2)
  - DEATH [None]
  - HYPOCALCAEMIA [None]
